FAERS Safety Report 21933579 (Version 3)
Quarter: 2024Q1

REPORT INFORMATION
  Report Type: Report from Study
  Country: US (occurrence: US)
  Receive Date: 20230201
  Receipt Date: 20240201
  Transmission Date: 20240409
  Serious: Yes (Hospitalization, Other)
  Sender: FDA-Public Use
  Company Number: US-ABBVIE-4289510

PATIENT
  Age: 65 Year
  Sex: Female

DRUGS (2)
  1. RINVOQ [Suspect]
     Active Substance: UPADACITINIB
     Indication: Rheumatoid arthritis
     Dosage: FREQUENCY TEXT: DAILY
     Route: 048
     Dates: start: 20200101
  2. RINVOQ [Suspect]
     Active Substance: UPADACITINIB
     Indication: Rheumatoid arthritis
     Route: 048
     Dates: start: 202212

REACTIONS (8)
  - Cardiac pacemaker insertion [Recovered/Resolved]
  - Peripheral swelling [Recovering/Resolving]
  - Cardiac failure [Unknown]
  - Cough [Not Recovered/Not Resolved]
  - Haematocrit abnormal [Unknown]
  - Urinary tract infection [Unknown]
  - Haemoglobin abnormal [Unknown]
  - Chronic obstructive pulmonary disease [Unknown]

NARRATIVE: CASE EVENT DATE: 20210801
